FAERS Safety Report 7513270-8 (Version None)
Quarter: 2011Q2

REPORT INFORMATION
  Report Type: 
  Country: None (occurrence: None)
  Receive Date: 20110531
  Receipt Date: 20110418
  Transmission Date: 20111010
  Serious: Yes (Hospitalization, Other)
  Sender: FDA-Public Use
  Company Number: US-BAYER-201029746NA

PATIENT
  Age: 46 Year
  Sex: Female
  Weight: 77.098 kg

DRUGS (24)
  1. DARVOCET [Concomitant]
     Indication: FIBROMYALGIA
     Dosage: 100 MG, PRN
     Route: 048
  2. FLUCONAZOLE [Concomitant]
     Indication: PRODUCT USED FOR UNKNOWN INDICATION
     Dosage: 150 MG, ONCE
     Route: 048
     Dates: start: 20080324, end: 20080324
  3. LOESTRIN 1.5/30 [Concomitant]
     Indication: CONTRACEPTION
     Dosage: UNK
     Dates: start: 20080201
  4. FOLIC ACID [Concomitant]
  5. DARVOCET [Concomitant]
  6. OSCAL D [Concomitant]
     Dosage: 500 MG, UNK
     Route: 048
  7. BENTYL [Concomitant]
     Indication: GASTRITIS
     Dosage: 20 MG, QD
     Route: 048
  8. PROAIR HFA [Concomitant]
     Indication: ASTHMA
  9. NEXIUM [Concomitant]
     Indication: GASTROOESOPHAGEAL REFLUX DISEASE
     Dosage: 40 MG, QD
     Dates: start: 20060801
  10. PENICILLIN [Concomitant]
     Indication: PRODUCT USED FOR UNKNOWN INDICATION
     Dosage: 500 MG, TID
     Route: 048
     Dates: start: 20080416
  11. ASPIRIN [Concomitant]
     Indication: CARDIOVASCULAR EVENT PROPHYLAXIS
     Dosage: 81 MG, UNK
     Route: 048
     Dates: start: 20080101
  12. ALBUTEROL SULFATE AUTOHALER [Concomitant]
     Indication: ASTHMA
     Dosage: 2 PUFF(S), PRN
     Route: 045
  13. CYANOCOBALAMIN [Concomitant]
     Indication: VITAMIN SUPPLEMENTATION
     Dosage: UNK UNK, Q1MON
  14. CYMBALTA [Concomitant]
     Indication: FIBROMYALGIA
     Dosage: 60 MG, QD
     Dates: start: 20070901
  15. REGLAN [Concomitant]
  16. GLIPIZIDE [Concomitant]
     Indication: DIABETES MELLITUS
     Dosage: UNK
     Route: 048
     Dates: start: 20060801, end: 20071201
  17. ZELNORM [Concomitant]
     Indication: PRODUCT USED FOR UNKNOWN INDICATION
     Dosage: UNK
     Dates: start: 20070126
  18. PHENERGAN HCL [Concomitant]
     Indication: PRODUCT USED FOR UNKNOWN INDICATION
     Dosage: UNK
     Dates: start: 20070126
  19. YAZ [Suspect]
     Dosage: UNK
     Route: 048
     Dates: start: 20061001
  20. LORATADINE [Concomitant]
     Dosage: 10 MG, QD
     Route: 048
  21. IBUPROFEN [Concomitant]
     Dosage: 600 MG, BID
     Route: 048
  22. METFORMIN HCL [Concomitant]
     Indication: DIABETES MELLITUS
     Dosage: 500 MG, QD
     Route: 048
     Dates: start: 20060801
  23. DICYCLOMINE [Concomitant]
     Dosage: 10 MG, UNK
  24. ADVAIR DISKUS 100/50 [Concomitant]

REACTIONS (2)
  - ABDOMINAL PAIN [None]
  - BILIARY DYSKINESIA [None]
